FAERS Safety Report 8876449 (Version 1)
Quarter: 2012Q4

REPORT INFORMATION
  Report Type: 
  Country: BR (occurrence: BR)
  Receive Date: 20121031
  Receipt Date: 20121031
  Transmission Date: 20130627
  Serious: Yes (Other)
  Sender: FDA-Public Use
  Company Number: BR-ACCORD-015074

PATIENT
  Age: 47 Year
  Sex: Female
  Weight: 86 kg

DRUGS (8)
  1. DEXAMETHASONE [Concomitant]
     Indication: PREMEDICATION
     Route: 042
     Dates: start: 20121011, end: 20121011
  2. RANITIDINE [Concomitant]
     Route: 042
     Dates: start: 20121011, end: 20121011
  3. NIMESULIDE [Concomitant]
     Dates: start: 20120920
  4. METOCLOPRAMIDE [Concomitant]
     Dates: start: 20120719
  5. OMEPRAZOLE [Concomitant]
     Dates: start: 20120719
  6. ONDANSETRON [Concomitant]
     Route: 042
     Dates: start: 20121011, end: 20121011
  7. DIPHENHYDRAMINE [Concomitant]
     Dates: start: 20121011, end: 20121011
  8. PACLITAXEL [Suspect]
     Indication: INVASIVE DUCTAL BREAST CANCER
     Route: 042
     Dates: start: 20121011, end: 20121011

REACTIONS (3)
  - Ocular hyperaemia [Recovered/Resolved]
  - Erythema [Recovered/Resolved]
  - Feeling hot [Recovered/Resolved]
